FAERS Safety Report 9094974 (Version 1)
Quarter: 2013Q1

REPORT INFORMATION
  Report Type: Spontaneous
  Country: IE (occurrence: IE)
  Receive Date: 20130201
  Receipt Date: 20130201
  Transmission Date: 20140127
  Serious: Yes (Hospitalization)
  Sender: FDA-Public Use
  Company Number: IE-ELI_LILLY_AND_COMPANY-IE201301008106

PATIENT
  Sex: Female

DRUGS (10)
  1. FORSTEO [Suspect]
     Indication: OSTEOPOROSIS
     Dosage: 20MCG, DAILY
     Route: 058
     Dates: start: 20121125
  2. LYRINEL [Concomitant]
  3. PARIET [Concomitant]
  4. CENTYL [Concomitant]
  5. AMITRIPTYLINE [Concomitant]
  6. SOLPADEINE [Concomitant]
  7. ASPIRIN [Concomitant]
  8. TRITACE [Concomitant]
  9. LIPITOR [Concomitant]
  10. ZIMOVANE [Concomitant]

REACTIONS (1)
  - Mobility decreased [Not Recovered/Not Resolved]
